FAERS Safety Report 21793719 (Version 1)
Quarter: 2022Q4

REPORT INFORMATION
  Report Type: Report from Study
  Country: IT (occurrence: IT)
  Receive Date: 20221229
  Receipt Date: 20221229
  Transmission Date: 20230113
  Serious: Yes (Other)
  Sender: FDA-Public Use
  Company Number: None

PATIENT

DRUGS (5)
  1. PEGASPARGASE [Suspect]
     Active Substance: PEGASPARGASE
     Indication: B precursor type acute leukaemia
     Dosage: 2400 IU/DAY ON 08 AND 22/11/22
     Route: 042
     Dates: start: 20221108, end: 20221122
  2. PREDNISONE [Suspect]
     Active Substance: PREDNISONE
     Indication: B precursor type acute leukaemia
     Dosage: 55 MG/DAY FROM 05/11/22 TO 11/11/22, 60 MG/DAY FROM 11/11 TO 25/11/22
     Route: 048
     Dates: start: 20221104, end: 20221125
  3. DAUNORUBICIN [Suspect]
     Active Substance: DAUNORUBICIN
     Indication: B precursor type acute leukaemia
     Dosage: 28,50 MG/DAY ON 4, 11, 18, 25/11/22
     Route: 042
     Dates: start: 20221104, end: 20221125
  4. GLIVEC [Suspect]
     Active Substance: IMATINIB MESYLATE
     Indication: B precursor type acute leukaemia
     Dosage: 325 MG/DAY
     Route: 048
     Dates: start: 20221111
  5. VINCRISTINE [Concomitant]
     Active Substance: VINCRISTINE
     Indication: B precursor type acute leukaemia
     Dosage: 1,40 MG/DAY ON 4, 11, 18, 25/11/22.
     Route: 042
     Dates: start: 20221104, end: 20221125

REACTIONS (3)
  - Hyperbilirubinaemia [Recovered/Resolved]
  - Amylase increased [Recovered/Resolved]
  - Hypoalbuminaemia [Not Recovered/Not Resolved]

NARRATIVE: CASE EVENT DATE: 20221115
